FAERS Safety Report 8998050 (Version 1)
Quarter: 2013Q1

REPORT INFORMATION
  Report Type: Report from Study
  Country: JP (occurrence: JP)
  Receive Date: 20130104
  Receipt Date: 20130104
  Transmission Date: 20140127
  Serious: Yes (Hospitalization, Other)
  Sender: FDA-Public Use
  Company Number: JP-VERTEX PHARMACEUTICAL INC.-2012-020273

PATIENT
  Age: 0 Year
  Sex: Male

DRUGS (7)
  1. VX-950 (TELAPREVIR) [Suspect]
     Indication: CHRONIC HEPATITIS C
     Dosage: 2250 MG, QD
     Route: 048
     Dates: start: 20120627, end: 20120702
  2. VX-950 (TELAPREVIR) [Suspect]
     Dosage: 1500 UNK, UNK
     Route: 048
     Dates: start: 20120703, end: 20120707
  3. VX-950 (TELAPREVIR) [Suspect]
     Dosage: 750 UNK, UNK
     Route: 048
     Dates: start: 20120708, end: 20120821
  4. RIBAVIRIN [Concomitant]
     Dosage: 600 MG, QD
     Route: 048
     Dates: start: 20120627, end: 20120806
  5. RIBAVIRIN [Concomitant]
     Dosage: 400 UNK, UNK
     Route: 048
     Dates: start: 20120807, end: 20120813
  6. RIBAVIRIN [Concomitant]
     Dosage: 200 UNK, UNK
     Route: 048
     Dates: start: 20120814, end: 20121114
  7. PEGINTERFERON ALFA-2B [Concomitant]
     Dosage: 1.5 UNK, UNK
     Route: 058
     Dates: end: 20121114

REACTIONS (5)
  - Diabetic gangrene [Unknown]
  - Renal impairment [Recovered/Resolved]
  - Renal impairment [Unknown]
  - Anaemia [Unknown]
  - Hyperuricaemia [Recovered/Resolved]
